FAERS Safety Report 7047336-6 (Version None)
Quarter: 2010Q4

REPORT INFORMATION
  Report Type: 
  Country: None (occurrence: None)
  Receive Date: 20101015
  Receipt Date: 20101006
  Transmission Date: 20110411
  Serious: Yes (Other)
  Sender: FDA-Public Use
  Company Number: PHHY2010JP67439

PATIENT
  Age: 30 Year
  Sex: Female

DRUGS (5)
  1. TEGRETOL [Suspect]
     Indication: EPILEPSY
     Dosage: 800 MG
  2. TOPIRAMATE [Suspect]
     Indication: EPILEPSY
     Dosage: 400 MG
  3. EXCEGRAN [Concomitant]
     Indication: EPILEPSY
     Dosage: 400 MG
  4. EXCEGRAN [Concomitant]
     Dosage: 300 MG
  5. MYSTAN [Concomitant]
     Indication: EPILEPSY
     Dosage: 15 MG

REACTIONS (2)
  - HALLUCINATION [None]
  - PARANOIA [None]
